FAERS Safety Report 12114093 (Version 1)
Quarter: 2016Q1

REPORT INFORMATION
  Report Type: Spontaneous
  Country: US (occurrence: None)
  Receive Date: 20160224
  Receipt Date: 20160224
  Transmission Date: 20160526
  Serious: Yes (Hospitalization)
  Sender: FDA-Public Use
  Company Number: None

PATIENT
  Age: 45 Year
  Sex: Male
  Weight: 131.54 kg

DRUGS (3)
  1. TRULICITY [Suspect]
     Active Substance: DULAGLUTIDE
     Indication: DIABETES MELLITUS MANAGEMENT
     Dosage: 1 SHOT ONCE PER WEEK SHOT INTO ABDOMINAL REGION
  2. INSULIN HUMULIN R-500 [Concomitant]
  3. VALSARTIN [Concomitant]

REACTIONS (7)
  - Vasculitis [None]
  - Vascular rupture [None]
  - Pain in extremity [None]
  - Hypersensitivity [None]
  - Peripheral swelling [None]
  - Muscle necrosis [None]
  - Petechiae [None]

NARRATIVE: CASE EVENT DATE: 20160118
